FAERS Safety Report 8760250 (Version 1)
Quarter: 2012Q4

REPORT INFORMATION
  Report Type: Spontaneous
  Country: US (occurrence: None)
  Receive Date: 20120828
  Receipt Date: 20120828
  Transmission Date: 20130627
  Serious: Yes (Other)
  Sender: FDA-Public Use
  Company Number: None

PATIENT
  Age: 59 Year
  Sex: Female
  Weight: 56.7 kg

DRUGS (2)
  1. ZOCOR [Suspect]
     Indication: CHOLESTEROL HIGH
     Dosage: event abated after use (over time)
     Route: 048
     Dates: start: 1994, end: 2010
  2. SYNTHROID [Concomitant]

REACTIONS (12)
  - Myositis [None]
  - Myopathy [None]
  - Tetany [None]
  - Arthralgia [None]
  - Muscle spasms [None]
  - Muscular weakness [None]
  - Paraesthesia [None]
  - Abdominal pain [None]
  - Thermal burn [None]
  - Skin discolouration [None]
  - Bladder pain [None]
  - Bladder neck obstruction [None]
